FAERS Safety Report 7648601-1 (Version None)
Quarter: 2011Q3

REPORT INFORMATION
  Report Type: 
  Country: None (occurrence: None)
  Receive Date: 20110801
  Receipt Date: 20110718
  Transmission Date: 20111222
  Serious: Yes (Other)
  Sender: FDA-Public Use
  Company Number: PHHY2011BR65685

PATIENT
  Sex: Male

DRUGS (1)
  1. TEGRETOL [Suspect]
     Indication: PSYCHOMOTOR HYPERACTIVITY
     Dosage: 1 DF, DAILY
     Route: 048

REACTIONS (2)
  - LABYRINTHITIS [None]
  - COUGH [None]
